FAERS Safety Report 22655386 (Version 1)
Quarter: 2023Q2

REPORT INFORMATION
  Report Type: Spontaneous
  Country: US (occurrence: US)
  Receive Date: 20230629
  Receipt Date: 20230629
  Transmission Date: 20230722
  Serious: No
  Sender: FDA-Public Use
  Company Number: US-PERRIGO-23US001259

PATIENT
  Sex: Female

DRUGS (4)
  1. MICONAZOLE 1 [Suspect]
     Active Substance: MICONAZOLE NITRATE
     Indication: Vulvovaginal burning sensation
     Dosage: UNKNOWN, UNKNOWN
     Route: 067
     Dates: start: 202301
  2. MICONAZOLE 1 [Suspect]
     Active Substance: MICONAZOLE NITRATE
     Indication: Vaginal infection
  3. MICONAZOLE 1 [Suspect]
     Active Substance: MICONAZOLE NITRATE
     Indication: Vulvovaginal burning sensation
     Dosage: UNK, UNK
     Route: 061
     Dates: start: 202301
  4. MICONAZOLE 1 [Suspect]
     Active Substance: MICONAZOLE NITRATE
     Indication: Vaginal infection

REACTIONS (1)
  - Vulvovaginal burning sensation [Unknown]

NARRATIVE: CASE EVENT DATE: 20230101
